FAERS Safety Report 20778055 (Version 1)
Quarter: 2022Q2

REPORT INFORMATION
  Report Type: Spontaneous
  Country: US (occurrence: US)
  Receive Date: 20220503
  Receipt Date: 20220503
  Transmission Date: 20220720
  Serious: Yes (Other)
  Sender: FDA-Public Use
  Company Number: US-PERRIGO-22US005988

PATIENT
  Age: 54 Year
  Sex: Male

DRUGS (1)
  1. ACETAMINOPHEN [Suspect]
     Active Substance: ACETAMINOPHEN
     Indication: Pain
     Dosage: UNKNOWN AMOUNT OF CRUSHED TABLETS, QD
     Route: 045

REACTIONS (3)
  - Soft tissue necrosis [Unknown]
  - Fungal rhinitis [Unknown]
  - Intentional product use issue [Unknown]
